FAERS Safety Report 9867996 (Version 5)
Quarter: 2014Q3

REPORT INFORMATION
  Report Type: Report from Study
  Country: DE (occurrence: DE)
  Receive Date: 20140204
  Receipt Date: 20140821
  Transmission Date: 20150326
  Serious: Yes (Death, Hospitalization)
  Sender: FDA-Public Use
  Company Number: DE-ABBVIE-14P-062-1186077-00

PATIENT
  Age: 79 Year
  Sex: Male

DRUGS (1)
  1. LUPRON DEPOT [Suspect]
     Active Substance: LEUPROLIDE ACETATE
     Indication: PROSTATE CANCER
     Route: 058
     Dates: start: 20130124, end: 20140124

REACTIONS (7)
  - Hyperlipidaemia [Unknown]
  - Acute myocardial infarction [Fatal]
  - Pulseless electrical activity [Fatal]
  - Coronary artery disease [Fatal]
  - Calculus bladder [Unknown]
  - Urinary tract obstruction [Unknown]
  - Cardiogenic shock [Fatal]

NARRATIVE: CASE EVENT DATE: 2013
